FAERS Safety Report 10602794 (Version 2)
Quarter: 2014Q4

REPORT INFORMATION
  Report Type: Report from Study
  Country: JP (occurrence: JP)
  Receive Date: 20141124
  Receipt Date: 20141124
  Transmission Date: 20150529
  Serious: Yes (Death, Hospitalization, Other)
  Sender: FDA-Public Use
  Company Number: PHHY2013JP085578

PATIENT
  Age: 79 Year
  Sex: Male
  Weight: 50 kg

DRUGS (29)
  1. ZYLORIC [Concomitant]
     Active Substance: ALLOPURINOL
     Indication: PRODUCT USED FOR UNKNOWN INDICATION
     Dosage: 100 MG
     Route: 048
     Dates: start: 200801, end: 20120119
  2. ICL670A [Suspect]
     Active Substance: DEFERASIROX
     Indication: REFRACTORY CYTOPENIA WITH UNILINEAGE DYSPLASIA
     Dosage: 250 MG, QD
     Route: 048
     Dates: start: 20120317, end: 20120323
  3. KAYEXALATE [Concomitant]
     Active Substance: SODIUM POLYSTYRENE SULFONATE
     Indication: PROPHYLAXIS
     Dosage: 5 G, UNK
     Route: 048
     Dates: start: 20080808, end: 20101229
  4. ICL670A [Suspect]
     Active Substance: DEFERASIROX
     Indication: MYELODYSPLASTIC SYNDROME
     Dosage: 1250 MG, QD
     Route: 048
     Dates: start: 20090124, end: 20110824
  5. BAKTAR [Suspect]
     Active Substance: SULFAMETHOXAZOLE\TRIMETHOPRIM
     Dosage: 1 DF, 3 TIMES PER WEEK
     Route: 048
     Dates: start: 20091205, end: 20110128
  6. BAKTAR [Suspect]
     Active Substance: SULFAMETHOXAZOLE\TRIMETHOPRIM
     Dosage: 0.5 DF, QD
     Route: 048
     Dates: start: 20110927, end: 20120411
  7. KALIMATE [Suspect]
     Active Substance: POLYSTYRENE SULFONIC ACID
     Indication: PRODUCT USED FOR UNKNOWN INDICATION
     Dosage: 5.4 G, QD
     Route: 048
     Dates: start: 20120120, end: 20120209
  8. TAKEPRON [Concomitant]
     Active Substance: LANSOPRAZOLE
     Indication: PROPHYLAXIS
     Dosage: 20 MG, UNK
     Route: 048
     Dates: start: 20111216
  9. FEBURIC [Concomitant]
     Active Substance: FEBUXOSTAT
     Indication: PRODUCT USED FOR UNKNOWN INDICATION
     Dosage: 10 MG, UNK
     Route: 048
     Dates: start: 20120120
  10. ICL670A [Suspect]
     Active Substance: DEFERASIROX
     Dosage: 10 MG/KG, QD
     Route: 065
  11. BAKTAR [Suspect]
     Active Substance: SULFAMETHOXAZOLE\TRIMETHOPRIM
     Dosage: 1 DF, QD
     Route: 048
     Dates: start: 20110909, end: 20110915
  12. MAXIPIME [Concomitant]
     Active Substance: CEFEPIME HYDROCHLORIDE
     Indication: PRODUCT USED FOR UNKNOWN INDICATION
     Dosage: UNK
     Route: 065
  13. LASIX [Concomitant]
     Active Substance: FUROSEMIDE
     Indication: PROPHYLAXIS
     Dosage: 20 MG
     Route: 048
     Dates: start: 20081212
  14. LASIX [Concomitant]
     Active Substance: FUROSEMIDE
     Dosage: 40 MG, UNK
     Route: 048
  15. PREDNISOLONE. [Suspect]
     Active Substance: PREDNISOLONE
     Indication: MYELOFIBROSIS
     Dosage: 2 MG, QD
     Route: 048
     Dates: start: 200801, end: 20110822
  16. PERSANTIN [Concomitant]
     Active Substance: DIPYRIDAMOLE
     Indication: PROPHYLAXIS
     Dosage: 75 MG, UNK
     Route: 048
     Dates: start: 200801, end: 20111013
  17. ICL670A [Suspect]
     Active Substance: DEFERASIROX
     Indication: MYELOFIBROSIS
     Dosage: 1000 MG, QD
     Route: 048
     Dates: start: 20081129, end: 20090123
  18. ICL670A [Suspect]
     Active Substance: DEFERASIROX
     Dosage: 20 MG/KG, QD
     Route: 065
  19. LASIX [Concomitant]
     Active Substance: FUROSEMIDE
     Dosage: UNK
     Route: 048
     Dates: start: 20081226, end: 20111202
  20. LASIX [Concomitant]
     Active Substance: FUROSEMIDE
     Dosage: 20 MG, UNK
     Route: 048
  21. ADALAT [Concomitant]
     Active Substance: NIFEDIPINE
     Indication: PRODUCT USED FOR UNKNOWN INDICATION
     Dosage: 20 MG, UNK
     Route: 048
     Dates: start: 20111203
  22. BAKTAR [Suspect]
     Active Substance: SULFAMETHOXAZOLE\TRIMETHOPRIM
     Indication: PROPHYLAXIS
     Dosage: 1 DF, UKN
     Route: 048
     Dates: start: 20080808
  23. SORBITOL. [Concomitant]
     Active Substance: SORBITOL
     Indication: PRODUCT USED FOR UNKNOWN INDICATION
     Dosage: 20 ML
     Route: 048
     Dates: start: 20080808
  24. SORBITOL. [Concomitant]
     Active Substance: SORBITOL
     Dosage: 10 ML
     Route: 048
  25. PREDNISOLONE. [Suspect]
     Active Substance: PREDNISOLONE
     Dosage: 2 MG, QD
     Route: 048
     Dates: start: 20110921, end: 20120323
  26. INFLUENZA HA VACCINE [Suspect]
     Active Substance: INFLUENZA VIRUS VACCINE
     Indication: PRODUCT USED FOR UNKNOWN INDICATION
     Route: 065
  27. SORBITOL. [Concomitant]
     Active Substance: SORBITOL
     Dosage: 10 ML
     Route: 048
     Dates: end: 20101229
  28. LASIX [Concomitant]
     Active Substance: FUROSEMIDE
     Dosage: 20 MG, UNK
     Route: 048
     Dates: end: 20120119
  29. LASIX [Concomitant]
     Active Substance: FUROSEMIDE
     Dosage: UNK
     Route: 048
     Dates: end: 20120411

REACTIONS (14)
  - Platelet count decreased [Not Recovered/Not Resolved]
  - Enterocolitis bacterial [Recovering/Resolving]
  - Infection [Fatal]
  - Serum ferritin increased [Unknown]
  - Cardiac failure [Recovering/Resolving]
  - Intestinal obstruction [Recovered/Resolved]
  - Myelodysplastic syndrome [Unknown]
  - Pneumocystis jirovecii pneumonia [Recovering/Resolving]
  - Diabetes mellitus [Not Recovered/Not Resolved]
  - Diarrhoea [Unknown]
  - Renal impairment [Recovered/Resolved]
  - Upper respiratory tract infection [Recovered/Resolved]
  - Hyperkalaemia [Recovering/Resolving]
  - Pneumonia aspiration [Fatal]

NARRATIVE: CASE EVENT DATE: 20120204
